FAERS Safety Report 19014042 (Version 2)
Quarter: 2021Q2

REPORT INFORMATION
  Report Type: Spontaneous
  Country: US (occurrence: US)
  Receive Date: 20210316
  Receipt Date: 20210618
  Transmission Date: 20210717
  Serious: Yes (Other)
  Sender: FDA-Public Use
  Company Number: US-ENDO PHARMACEUTICALS INC-2021-001561

PATIENT
  Age: 64 Year
  Sex: Male

DRUGS (4)
  1. ZANTAC [Suspect]
     Active Substance: RANITIDINE HYDROCHLORIDE
     Indication: GASTROINTESTINAL DISORDER
     Dosage: 300 MG, DAILY
     Route: 065
     Dates: start: 200601, end: 200602
  2. RANITIDINE. [Suspect]
     Active Substance: RANITIDINE
     Indication: GASTROINTESTINAL DISORDER
     Dosage: 300 MG, DAILY
     Route: 065
     Dates: start: 200603, end: 202003
  3. RANITIDINE HYDROCHLORIDE. [Suspect]
     Active Substance: RANITIDINE HYDROCHLORIDE
     Indication: GASTROINTESTINAL DISORDER
     Dosage: 300 MG, DAILY
     Route: 065
     Dates: start: 200603, end: 202003
  4. ZANTAC [Suspect]
     Active Substance: RANITIDINE HYDROCHLORIDE
     Indication: GASTROINTESTINAL DISORDER
     Dosage: 300 MG, DAILY
     Route: 065
     Dates: start: 200601, end: 200602

REACTIONS (2)
  - Lung neoplasm malignant [Unknown]
  - Bladder cancer [Recovering/Resolving]

NARRATIVE: CASE EVENT DATE: 20070901
